FAERS Safety Report 24306749 (Version 1)
Quarter: 2024Q3

REPORT INFORMATION
  Report Type: Spontaneous
  Country: CN (occurrence: CN)
  Receive Date: 20240911
  Receipt Date: 20240911
  Transmission Date: 20241017
  Serious: Yes (Life-Threatening, Hospitalization, Other)
  Sender: BAXTER
  Company Number: None

PATIENT
  Age: 47 Year
  Sex: Female
  Weight: 48 kg

DRUGS (9)
  1. CYCLOPHOSPHAMIDE [Suspect]
     Active Substance: CYCLOPHOSPHAMIDE
     Indication: Breast cancer female
     Dosage: 0.7 G, ONE TIME IN ONE DAY DILUTED WITH SODIUM CHLORIDE 40 ML, AS A PART OF TAC REGIME
     Route: 041
     Dates: start: 20240815, end: 20240815
  2. CYCLOPHOSPHAMIDE [Suspect]
     Active Substance: CYCLOPHOSPHAMIDE
     Indication: Chemotherapy
  3. EPIRUBICIN [Suspect]
     Active Substance: EPIRUBICIN
     Indication: Breast cancer female
     Dosage: 130 MG, ONE TIME IN ONE DAY DILUTED WITH SODIUM CHLORIDE 100 ML, AS A PART OF TAC REGIME
     Route: 041
     Dates: start: 20240815, end: 20240815
  4. EPIRUBICIN [Suspect]
     Active Substance: EPIRUBICIN
     Indication: Chemotherapy
  5. PACLITAXEL [Suspect]
     Active Substance: PACLITAXEL
     Indication: Breast cancer female
     Dosage: 200 MG, ONE TIME IN SEVEN DAYS, DILUTED WITH SODIUM CHLORIDE 250 ML, AS A PART OF TAC REGIME
     Route: 041
     Dates: start: 20240815, end: 20240821
  6. PACLITAXEL [Suspect]
     Active Substance: PACLITAXEL
     Indication: Chemotherapy
  7. SODIUM CHLORIDE [Suspect]
     Active Substance: SODIUM CHLORIDE
     Indication: Medication dilution
     Dosage: 40 ML, ONE TIME IN ONE DAY USED TO DILUTE CYCLOPHOSPHAMIDE 0.7 G
     Route: 041
     Dates: start: 20240815, end: 20240815
  8. SODIUM CHLORIDE [Suspect]
     Active Substance: SODIUM CHLORIDE
     Dosage: 100 ML, ONE TIME IN ONE DAY USED TO DILUTE PHARMORUBICIN 130 MG
     Route: 041
     Dates: start: 20240815, end: 20240815
  9. SODIUM CHLORIDE [Suspect]
     Active Substance: SODIUM CHLORIDE
     Dosage: 250 ML, ONE TIME IN SEVEN DAYS USED TO DILUTE PACLITAXEL FOR INJECTION 200 MG
     Route: 041
     Dates: start: 20240815, end: 20240821

REACTIONS (4)
  - Breast cancer [Unknown]
  - Myelosuppression [Recovering/Resolving]
  - Pyrexia [Unknown]
  - Oropharyngeal pain [Unknown]

NARRATIVE: CASE EVENT DATE: 20240818
